FAERS Safety Report 20306751 (Version 1)
Quarter: 2022Q1

REPORT INFORMATION
  Report Type: Spontaneous
  Country: DZ (occurrence: DZ)
  Receive Date: 20220106
  Receipt Date: 20220106
  Transmission Date: 20220424
  Serious: Yes (Other)
  Sender: FDA-Public Use
  Company Number: DZ-ABBVIE-22K-003-4222068-00

PATIENT
  Age: 5 Year
  Sex: Female

DRUGS (1)
  1. VALPROATE SODIUM [Suspect]
     Active Substance: VALPROATE SODIUM
     Indication: Epilepsy
     Route: 048
     Dates: start: 201701

REACTIONS (2)
  - Hypothyroidism [Not Recovered/Not Resolved]
  - Language disorder [Recovering/Resolving]

NARRATIVE: CASE EVENT DATE: 20170101
